FAERS Safety Report 15729396 (Version 1)
Quarter: 2018Q4

REPORT INFORMATION
  Report Type: Spontaneous
  Country: JP (occurrence: JP)
  Receive Date: 20181217
  Receipt Date: 20181217
  Transmission Date: 20190205
  Serious: Yes (Other)
  Sender: FDA-Public Use
  Company Number: JP-GLAXOSMITHKLINE-JP2018JPN223967

PATIENT
  Age: 75 Year
  Sex: Female

DRUGS (3)
  1. FLUTIDE DISKUS [Suspect]
     Active Substance: FLUTICASONE PROPIONATE
     Indication: ASTHMA
     Dosage: 100 ?G, BID(MORNING,EVENING)
     Route: 055
     Dates: start: 20081211
  2. KAKKONTO [Concomitant]
     Active Substance: HERBALS
     Dosage: UNK
  3. FLUTIDE DISKUS [Suspect]
     Active Substance: FLUTICASONE PROPIONATE
     Dosage: 200 ?G, QD(MORNING)
     Route: 055

REACTIONS (6)
  - Influenza [Unknown]
  - Product use issue [Unknown]
  - Pyrexia [Recovered/Resolved]
  - Circumstance or information capable of leading to medication error [Unknown]
  - Cough [Unknown]
  - Pneumonia [Unknown]

NARRATIVE: CASE EVENT DATE: 2018
